FAERS Safety Report 9713722 (Version 2)
Quarter: 2014Q1

REPORT INFORMATION
  Report Type: Spontaneous
  Country: GB (occurrence: GB)
  Receive Date: 20131126
  Receipt Date: 20140314
  Transmission Date: 20141002
  Serious: Yes (Hospitalization)
  Sender: FDA-Public Use
  Company Number: GB-PFIZER INC-2013334091

PATIENT
  Age: 65 Year
  Sex: Female
  Weight: 66.7 kg

DRUGS (4)
  1. IRINOTECAN HCL [Suspect]
     Indication: CHEMOTHERAPY
     Dosage: 306 MG, UNK
     Dates: start: 20131107, end: 20131107
  2. FOLINIC ACID [Concomitant]
     Indication: CHEMOTHERAPY
     Dosage: UNK
  3. FLUOROURACIL [Concomitant]
     Indication: CHEMOTHERAPY
  4. OXALIPLATIN [Concomitant]
     Indication: CHEMOTHERAPY
     Dosage: UNK

REACTIONS (3)
  - Hypoaesthesia oral [Recovered/Resolved]
  - Paraesthesia [Recovered/Resolved]
  - Dizziness [Recovered/Resolved]
